FAERS Safety Report 9429981 (Version 1)
Quarter: 2013Q3

REPORT INFORMATION
  Report Type: Spontaneous
  Country: CN (occurrence: None)
  Receive Date: 20130726
  Receipt Date: 20130726
  Transmission Date: 20140515
  Serious: Yes (Other)
  Sender: FDA-Public Use
  Company Number: 2013P1012923

PATIENT
  Sex: 0

DRUGS (2)
  1. PREDNISONE [Suspect]
     Indication: NEPHROPATHY
     Route: 048
  2. CYCLOPHOSPHAMIDE [Concomitant]

REACTIONS (1)
  - Respiratory failure [None]
